FAERS Safety Report 19393059 (Version 1)
Quarter: 2021Q2

REPORT INFORMATION
  Report Type: Spontaneous
  Country: US (occurrence: US)
  Receive Date: 20210608
  Receipt Date: 20210608
  Transmission Date: 20210717
  Serious: No
  Sender: FDA-Public Use
  Company Number: None

PATIENT
  Age: 56 Year
  Sex: Male
  Weight: 97.65 kg

DRUGS (1)
  1. BAMLANIVIMAB 700 MG/ETESEVIMAB 1400 MG [Suspect]
     Active Substance: BAMLANIVIMAB\ETESEVIMAB
     Indication: COVID-19
     Dates: start: 20210528, end: 20210528

REACTIONS (1)
  - Rash [None]

NARRATIVE: CASE EVENT DATE: 20210530
